FAERS Safety Report 11801815 (Version 1)
Quarter: 2015Q4

REPORT INFORMATION
  Report Type: Spontaneous
  Country: US (occurrence: None)
  Receive Date: 20151203
  Receipt Date: 20151203
  Transmission Date: 20160305
  Serious: Yes (Other)
  Sender: FDA-Public Use
  Company Number: None

PATIENT
  Age: 46 Year
  Sex: Female

DRUGS (1)
  1. STELARA [Suspect]
     Active Substance: USTEKINUMAB
     Indication: PSORIASIS
     Dosage: INJECTABLE
     Route: 058
     Dates: start: 201511

REACTIONS (3)
  - Dizziness [None]
  - Headache [None]
  - Psoriasis [None]

NARRATIVE: CASE EVENT DATE: 20151101
